FAERS Safety Report 12781807 (Version 3)
Quarter: 2016Q4

REPORT INFORMATION
  Report Type: Report from Study
  Country: US (occurrence: US)
  Receive Date: 20160926
  Receipt Date: 20161017
  Transmission Date: 20170207
  Serious: Yes (Hospitalization, Other)
  Sender: FDA-Public Use
  Company Number: US-ASTRAZENECA-2016SF00995

PATIENT
  Sex: Female
  Weight: 72.6 kg

DRUGS (2)
  1. PULMICORT TURBUHALER [Suspect]
     Active Substance: BUDESONIDE
     Route: 055
  2. DALIRESP [Suspect]
     Active Substance: ROFLUMILAST
     Indication: CHRONIC OBSTRUCTIVE PULMONARY DISEASE
     Route: 048

REACTIONS (15)
  - Large intestinal obstruction [Recovered/Resolved]
  - Oxygen consumption increased [Not Recovered/Not Resolved]
  - Pneumonia [Unknown]
  - Weight increased [Unknown]
  - Dyspnoea [Not Recovered/Not Resolved]
  - Abdominal distension [Recovering/Resolving]
  - Chronic obstructive pulmonary disease [Not Recovered/Not Resolved]
  - Oxygen saturation decreased [Not Recovered/Not Resolved]
  - Intentional product misuse [Unknown]
  - Hernia [Recovered/Resolved]
  - Cardiac failure congestive [Not Recovered/Not Resolved]
  - Hypertension [Recovered/Resolved]
  - Memory impairment [Unknown]
  - Drug hypersensitivity [Not Recovered/Not Resolved]
  - Malaise [Recovering/Resolving]
